FAERS Safety Report 20695251 (Version 1)
Quarter: 2022Q2

REPORT INFORMATION
  Report Type: Spontaneous
  Country: US (occurrence: None)
  Receive Date: 20220408
  Receipt Date: 20220408
  Transmission Date: 20220721
  Serious: Yes (Life-Threatening, Hospitalization)
  Sender: FDA-Public Use
  Company Number: None

PATIENT
  Age: 27 Year
  Sex: Female
  Weight: 96 kg

DRUGS (1)
  1. BEBTELOVIMAB [Suspect]
     Active Substance: BEBTELOVIMAB
     Indication: COVID-19
     Dosage: FREQUENCY : ONCE;?
     Route: 042

REACTIONS (14)
  - Nausea [None]
  - Rash [None]
  - Chest pain [None]
  - Vomiting [None]
  - Paraesthesia [None]
  - Feeling abnormal [None]
  - Chest pain [None]
  - Infusion related reaction [None]
  - Anxiety [None]
  - Dyspnoea [None]
  - Caesarean section [None]
  - Maternal exposure during pregnancy [None]
  - Foetal exposure during pregnancy [None]
  - Tachycardia foetal [None]

NARRATIVE: CASE EVENT DATE: 20220407
